FAERS Safety Report 10205387 (Version 1)
Quarter: 2014Q2

REPORT INFORMATION
  Report Type: Spontaneous
  Country: US (occurrence: US)
  Receive Date: 20140529
  Receipt Date: 20140529
  Transmission Date: 20141212
  Serious: No
  Sender: FDA-Public Use
  Company Number: US-TEVA-485227USA

PATIENT
  Age: 30 Year
  Sex: Female
  Weight: 59.02 kg

DRUGS (2)
  1. TAKE ACTION [Suspect]
     Indication: POST COITAL CONTRACEPTION
     Dosage: 1.5 MILLIGRAM DAILY;
     Route: 048
     Dates: start: 20140506, end: 20140506
  2. IRON [Concomitant]
     Indication: ANAEMIA

REACTIONS (10)
  - Malaise [Not Recovered/Not Resolved]
  - Flank pain [Recovered/Resolved]
  - Back pain [Not Recovered/Not Resolved]
  - Nausea [Not Recovered/Not Resolved]
  - Vomiting [Recovered/Resolved]
  - Dizziness [Not Recovered/Not Resolved]
  - Fatigue [Not Recovered/Not Resolved]
  - Pelvic pain [Not Recovered/Not Resolved]
  - Headache [Recovered/Resolved]
  - Menstruation irregular [Not Recovered/Not Resolved]
